FAERS Safety Report 5988959-2 (Version None)
Quarter: 2008Q4

REPORT INFORMATION
  Report Type: 
  Country: None (occurrence: None)
  Receive Date: 20081209
  Receipt Date: 20081209
  Transmission Date: 20090506
  Serious: Yes (Other)
  Sender: FDA-Public Use
  Company Number: None

PATIENT
  Sex: Female

DRUGS (1)
  1. CLINDAMYCIN HCL [Suspect]
     Dosage: 150MG BID PO
     Route: 048
     Dates: start: 20081128, end: 20081203

REACTIONS (2)
  - PRURITUS [None]
  - RASH [None]
